FAERS Safety Report 15138231 (Version 1)
Quarter: 2018Q3

REPORT INFORMATION
  Report Type: Spontaneous
  Country: GB (occurrence: GB)
  Receive Date: 20180713
  Receipt Date: 20180713
  Transmission Date: 20181010
  Serious: Yes (Other)
  Sender: FDA-Public Use
  Company Number: GB-TEVA-2018-GB-925018

PATIENT
  Age: 23 Year
  Sex: Female

DRUGS (2)
  1. IBUPROFEN. [Concomitant]
     Active Substance: IBUPROFEN
     Route: 065
  2. DOXYCYCLINE HYCLATE. [Suspect]
     Active Substance: DOXYCYCLINE HYCLATE
     Dosage: 1 DOSAGE FORMS DAILY;
     Route: 048
     Dates: start: 20180601

REACTIONS (3)
  - Headache [Unknown]
  - Hot flush [Recovering/Resolving]
  - Vomiting projectile [Recovering/Resolving]

NARRATIVE: CASE EVENT DATE: 20180601
